FAERS Safety Report 24958426 (Version 2)
Quarter: 2025Q4

REPORT INFORMATION
  Report Type: Spontaneous
  Country: US (occurrence: US)
  Receive Date: 20250212
  Receipt Date: 20251009
  Transmission Date: 20260118
  Serious: Yes (Disabling, Other)
  Sender: CHATTEM
  Company Number: US-OPELLA-2025OHG003532

PATIENT
  Sex: Male

DRUGS (1)
  1. GOLD BOND ORIGINAL STRENGTH [Suspect]
     Active Substance: MENTHOL
     Indication: Product used for unknown indication

REACTIONS (4)
  - Pleural mesothelioma malignant [Unknown]
  - Hypertransaminasaemia [Unknown]
  - Pituitary tumour benign [Unknown]
  - Exposure to chemical pollution [Unknown]

NARRATIVE: CASE EVENT DATE: 20241001
